FAERS Safety Report 9229884 (Version 2)
Quarter: 2013Q3

REPORT INFORMATION
  Report Type: Spontaneous
  Country: JP (occurrence: JP)
  Receive Date: 20130415
  Receipt Date: 20130830
  Transmission Date: 20140515
  Serious: Yes (Other)
  Sender: FDA-Public Use
  Company Number: JP-MERCK-1304JPN004846

PATIENT
  Age: 60 Year
  Sex: Female

DRUGS (1)
  1. TEMODAL [Suspect]
     Indication: MALIGNANT PITUITARY TUMOUR

REACTIONS (2)
  - Malignant pituitary tumour [Unknown]
  - Drug resistance [Unknown]
